FAERS Safety Report 23289435 (Version 1)
Quarter: 2023Q4

REPORT INFORMATION
  Report Type: Spontaneous
  Country: ES (occurrence: ES)
  Receive Date: 20231212
  Receipt Date: 20231212
  Transmission Date: 20240110
  Serious: Yes (Hospitalization)
  Sender: FDA-Public Use
  Company Number: None

PATIENT
  Age: 65 Year
  Sex: Female

DRUGS (10)
  1. OXYCONTIN [Suspect]
     Active Substance: OXYCODONE HYDROCHLORIDE
     Indication: Pain
     Dosage: 40.0 MG DECE, 28 TABLETS
     Route: 048
     Dates: start: 20230516, end: 20230606
  2. CALCIUM CARBONATE\CHOLECALCIFEROL [Concomitant]
     Active Substance: CALCIUM CARBONATE\CHOLECALCIFEROL
     Indication: Osteoporosis
     Dosage: 1.5 G CE, 60 TABLETS
     Route: 048
     Dates: start: 20181005
  3. SERETIDE [Concomitant]
     Active Substance: FLUTICASONE PROPIONATE\SALMETEROL XINAFOATE
     Indication: Asthma
     Dosage: 3.0 PUFF C/12 H, 1 INHALER + 60 ALVEOLI
     Dates: start: 20201215
  4. ATROALDO [Concomitant]
     Indication: Obstructive airways disorder
     Dosage: 60.0 MCG C/4 HOURS, PULSION INHALATION, 1 INHALER OF 200 DOSES
     Dates: start: 20181011
  5. VENTOLIN [Concomitant]
     Active Substance: ALBUTEROL SULFATE
     Indication: Asthma
     Dosage: 200.0 MCG C/8 HOURS, 1 200-DOSE INHALER
     Dates: start: 20111130
  6. RABEPRAZOLE SODIUM [Concomitant]
     Active Substance: RABEPRAZOLE SODIUM
     Indication: Alcoholism
     Dosage: 20.0 MG DE, 56 TABLETS
     Route: 048
     Dates: start: 20220908
  7. PREMAX [PREGABALIN] [Concomitant]
     Indication: Alcoholic psychosis
     Dosage: 600.0 MG C/24 H, 56 TABLETS
     Route: 048
     Dates: start: 20181105
  8. QUETIAPINE FUMARATE [Concomitant]
     Active Substance: QUETIAPINE FUMARATE
     Indication: Product used for unknown indication
     Dosage: 100.0 MG C/24 H NOC, 60 TABLETS
     Route: 048
     Dates: start: 20181105
  9. PARACETAMOL NORMON [Concomitant]
     Indication: Osteoarthritis
     Dosage: 1.0 G C/12 H, 40 TABLETS
     Route: 048
     Dates: start: 20230310
  10. FOSAVANCE [Concomitant]
     Active Substance: ALENDRONATE SODIUM\CHOLECALCIFEROL
     Indication: Osteoporosis
     Dosage: 70.0 MG C/7 DAYS, 4 TABLETS
     Route: 048
     Dates: start: 20181130

REACTIONS (1)
  - Disorientation [Recovered/Resolved]

NARRATIVE: CASE EVENT DATE: 20230606
